FAERS Safety Report 7879963-8 (Version None)
Quarter: 2011Q4

REPORT INFORMATION
  Report Type: 
  Country: None (occurrence: None)
  Receive Date: 20111101
  Receipt Date: 20111026
  Transmission Date: 20120403
  Serious: Yes (Hospitalization)
  Sender: FDA-Public Use
  Company Number: US-ROCHE-1007505

PATIENT
  Sex: Female

DRUGS (1)
  1. HERCEPTIN [Suspect]
     Indication: BREAST CANCER
     Route: 065

REACTIONS (7)
  - VOMITING [None]
  - JOINT SWELLING [None]
  - NAUSEA [None]
  - HIATUS HERNIA [None]
  - ARTHRALGIA [None]
  - WEIGHT DECREASED [None]
  - INFLUENZA LIKE ILLNESS [None]
